FAERS Safety Report 7586117-1 (Version None)
Quarter: 2011Q2

REPORT INFORMATION
  Report Type: 
  Country: None (occurrence: None)
  Receive Date: 20110603
  Receipt Date: 20110502
  Transmission Date: 20111010
  Serious: No
  Sender: FDA-Public Use
  Company Number: 2011SP019942

PATIENT
  Age: 43 Year
  Sex: Female

DRUGS (6)
  1. LIPITOR [Concomitant]
  2. TRILETTAL (TRILEPTAL) [Concomitant]
  3. NEXIUM [Concomitant]
  4. SAPHRIS [Suspect]
     Indication: DEPRESSION
     Dosage: 20 MG;HS;SL ; 20 MG;QOD;SL
     Route: 060
     Dates: start: 20110501
  5. SAPHRIS [Suspect]
     Indication: DEPRESSION
     Dosage: 20 MG;HS;SL ; 20 MG;QOD;SL
     Route: 060
     Dates: start: 20100101
  6. LAMICTAL [Concomitant]

REACTIONS (2)
  - WEIGHT INCREASED [None]
  - INAPPROPRIATE SCHEDULE OF DRUG ADMINISTRATION [None]
